FAERS Safety Report 23511970 (Version 2)
Quarter: 2024Q2

REPORT INFORMATION
  Report Type: Spontaneous
  Country: FR (occurrence: None)
  Receive Date: 20240212
  Receipt Date: 20240424
  Transmission Date: 20240717
  Serious: Yes (Hospitalization, Other)
  Sender: FDA-Public Use
  Company Number: 2024A034798

PATIENT
  Age: 5 Month
  Sex: Male
  Weight: 6.5 kg

DRUGS (1)
  1. BEYFORTUS [Suspect]
     Active Substance: NIRSEVIMAB-ALIP
     Indication: Respiratory syncytial virus immunisation
     Dosage: 0.5 ML, TOTAL0.5ML ONCE/SINGLE ADMINISTRATION
     Route: 030
     Dates: start: 20231026, end: 20231026

REACTIONS (4)
  - Respiratory syncytial virus bronchiolitis [Recovered/Resolved]
  - Drug ineffective [Unknown]
  - Pneumonia respiratory syncytial viral [Unknown]
  - Rhinovirus infection [Unknown]

NARRATIVE: CASE EVENT DATE: 20231027
